FAERS Safety Report 16348792 (Version 2)
Quarter: 2020Q2

REPORT INFORMATION
  Report Type: Report from Study
  Country: AU (occurrence: AU)
  Receive Date: 20190523
  Receipt Date: 20200515
  Transmission Date: 20200713
  Serious: Yes (Other)
  Sender: FDA-Public Use
  Company Number: AU-JNJFOC-20190425729

PATIENT
  Sex: Female

DRUGS (2)
  1. PREDNISOLONE. [Concomitant]
     Active Substance: PREDNISOLONE
     Indication: PRODUCT USED FOR UNKNOWN INDICATION
  2. REMICADE [Suspect]
     Active Substance: INFLIXIMAB
     Indication: CROHN^S DISEASE
     Dosage: WEIGHT DEPENDENT
     Route: 042
     Dates: start: 20190405

REACTIONS (4)
  - Rectal haemorrhage [Unknown]
  - Nasopharyngitis [Unknown]
  - Chest pain [Unknown]
  - Migraine [Unknown]

NARRATIVE: CASE EVENT DATE: 2019
